FAERS Safety Report 8225610-5 (Version None)
Quarter: 2012Q1

REPORT INFORMATION
  Report Type: 
  Country: None (occurrence: None)
  Receive Date: 20120321
  Receipt Date: 20120311
  Transmission Date: 20120608
  Serious: Yes (Hospitalization, Other)
  Sender: FDA-Public Use
  Company Number: FR-VERTEX PHARMACEUTICALS INC.-000000000000000132

PATIENT
  Sex: Male
  Weight: 54 kg

DRUGS (12)
  1. PEGASYS [Concomitant]
     Route: 058
     Dates: start: 20120125, end: 20120301
  2. KALETRA [Concomitant]
     Indication: HIV INFECTION
     Dosage: INITIATED IN MID-2011
  3. INCIVO (TELAPREVIR) [Suspect]
     Indication: HEPATITIS C
     Dosage: DOSAGE FORM: TABLET
     Route: 048
     Dates: start: 20111117, end: 20120126
  4. COPEGUS [Concomitant]
     Indication: HEPATITIS C
     Dosage: 400-0-600
     Route: 048
     Dates: start: 20111011
  5. CRESTOR [Concomitant]
  6. VIREAD [Concomitant]
     Indication: HIV INFECTION
     Dosage: INITIATED IN MID-2011
     Route: 048
     Dates: end: 20120101
  7. NEBIVOLOL [Concomitant]
  8. PEGASYS [Concomitant]
     Indication: HEPATITIS C
     Route: 058
     Dates: start: 20111011
  9. COPEGUS [Concomitant]
     Route: 048
     Dates: start: 20120105, end: 20120301
  10. ISENTRESS [Concomitant]
     Indication: HIV INFECTION
     Dosage: INITIATED IN MID-2011
  11. ABACAVIR SULFATE/LAMIVUDINE [Concomitant]
     Indication: HIV INFECTION
     Dosage: INITIATED IN MID-2011
  12. ASPIRIN [Concomitant]

REACTIONS (14)
  - GENERAL PHYSICAL HEALTH DETERIORATION [None]
  - DECREASED APPETITE [None]
  - PAIN [None]
  - BLOOD CREATININE INCREASED [None]
  - APHTHOUS STOMATITIS [None]
  - NAUSEA [None]
  - HEADACHE [None]
  - STAPHYLOCOCCAL ABSCESS [None]
  - PANCYTOPENIA [None]
  - ANAL PRURITUS [None]
  - DRY SKIN [None]
  - PYREXIA [None]
  - DERMATITIS BULLOUS [None]
  - OFF LABEL USE [None]
